FAERS Safety Report 11058005 (Version 1)
Quarter: 2015Q2

REPORT INFORMATION
  Report Type: Spontaneous
  Country: EE (occurrence: None)
  Receive Date: 20150417
  Receipt Date: 20150417
  Transmission Date: 20150821
  Serious: Yes (Hospitalization)
  Sender: FDA-Public Use
  Company Number: GAM-095-15-EE

PATIENT
  Age: 47 Year
  Sex: Female

DRUGS (8)
  1. CALCIUM CARBONATE. [Concomitant]
     Active Substance: CALCIUM CARBONATE
  2. CALECALCIFEROL [Concomitant]
  3. RAMIPRIL. [Concomitant]
     Active Substance: RAMIPRIL
  4. WARFARIN [Concomitant]
     Active Substance: WARFARIN
  5. AZITHROMYCIN [Concomitant]
     Active Substance: AZITHROMYCIN ANHYDROUS
  6. TACROLIMUS. [Concomitant]
     Active Substance: TACROLIMUS
  7. OCTAGAM IMMUNE GLOBULIN (HUMAN) [Suspect]
     Active Substance: HUMAN IMMUNOGLOBULIN G
     Indication: HYPOGAMMAGLOBULINAEMIA
     Dosage: 30 G (1X 1/TOTAL), INTRAVNEOUS (NOT OTHERWISE SPECIFIED)?
     Route: 042
     Dates: start: 20150319, end: 20150319
  8. PREDNISOLONE. [Concomitant]
     Active Substance: PREDNISOLONE

REACTIONS (7)
  - Feeling cold [None]
  - Tachycardia [None]
  - Dyspnoea [None]
  - Bronchial obstruction [None]
  - Oxygen saturation decreased [None]
  - Pulmonary oedema [None]
  - Infusion related reaction [None]

NARRATIVE: CASE EVENT DATE: 20150319
